FAERS Safety Report 8233891-7 (Version None)
Quarter: 2012Q1

REPORT INFORMATION
  Report Type: 
  Country: None (occurrence: None)
  Receive Date: 20120321
  Receipt Date: 20091207
  Transmission Date: 20120608
  Serious: Yes (Death)
  Sender: FDA-Public Use
  Company Number: IT-007933

PATIENT
  Age: 67 Year
  Sex: Female
  Weight: 58.8 kg

DRUGS (1)
  1. (CHLORAMBUCIL) [Suspect]
     Indication: CHRONIC LYMPHOCYTIC LEUKAEMIA
     Dosage: TABLET 10MG/M2 ON DAYS 1-7 EVERY 28 DAYS, ORAL
     Route: 048
     Dates: start: 20091020

REACTIONS (4)
  - PNEUMONIA [None]
  - CEREBELLAR ISCHAEMIA [None]
  - SEPTIC SHOCK [None]
  - CEREBRAL HAEMORRHAGE [None]
